FAERS Safety Report 4335257-9 (Version None)
Quarter: 2004Q2

REPORT INFORMATION
  Report Type: 
  Country: None (occurrence: None)
  Receive Date: 20040406
  Receipt Date: 20040212
  Transmission Date: 20050107
  Serious: Yes (Other)
  Sender: FDA-Public Use
  Company Number: 358914

PATIENT
  Sex: Male

DRUGS (1)
  1. FUZEON [Suspect]

REACTIONS (2)
  - CHILLS [None]
  - PYREXIA [None]
